FAERS Safety Report 22923586 (Version 3)
Quarter: 2024Q1

REPORT INFORMATION
  Report Type: Report from Study
  Country: FR (occurrence: FR)
  Receive Date: 20230908
  Receipt Date: 20240119
  Transmission Date: 20240410
  Serious: Yes (Hospitalization, Other)
  Sender: FDA-Public Use
  Company Number: FR-BAXTER-2023BAX028445

PATIENT
  Age: 73 Year
  Sex: Female
  Weight: 71 kg

DRUGS (16)
  1. PREDNISONE [Suspect]
     Active Substance: PREDNISONE
     Indication: Diffuse large B-cell lymphoma
     Dosage: 100 MILLIGRAM, QD (100 MG, EVERY 1 DAYS, ONGOING)
     Route: 048
     Dates: start: 20230727
  2. RITUXIMAB [Suspect]
     Active Substance: RITUXIMAB
     Indication: Diffuse large B-cell lymphoma
     Dosage: 660 MILLIGRAM, Q3W (EVERY 3 WEEKS)
     Route: 042
     Dates: start: 20230727
  3. VINCRISTINE [Suspect]
     Active Substance: VINCRISTINE
     Indication: Diffuse large B-cell lymphoma
     Dosage: 2 MILLIGRAM, Q3W (EVERY 3 WEEKS, ONGOING)
     Route: 042
     Dates: start: 20230727
  4. EPCORITAMAB [Suspect]
     Active Substance: EPCORITAMAB
     Indication: Diffuse large B-cell lymphoma
     Dosage: 0.16 MILLIGRAM,TOTAL,(C1D1)
     Route: 058
     Dates: start: 20230727
  5. EPCORITAMAB [Suspect]
     Active Substance: EPCORITAMAB
     Dosage: 0.16 MG PRIMING DOSE, C1, D1, TOTAL
     Route: 058
     Dates: start: 20230728, end: 20230728
  6. EPCORITAMAB [Suspect]
     Active Substance: EPCORITAMAB
     Dosage: 0.8 MG INTERMEDIATE DOSE, C1, D8, TOTAL
     Route: 058
     Dates: start: 20230804, end: 20230804
  7. EPCORITAMAB [Suspect]
     Active Substance: EPCORITAMAB
     Dosage: 48 MG FULL DOSE, EVERY 1 WEEKS
     Route: 058
     Dates: start: 20230811
  8. CYCLOPHOSPHAMIDE [Suspect]
     Active Substance: CYCLOPHOSPHAMIDE
     Indication: Diffuse large B-cell lymphoma
     Dosage: 1325 MILLIGRAM, Q3W (1325 MG, EVERY 3 WEEKS)
     Route: 042
     Dates: start: 20230727, end: 20230727
  9. CYCLOPHOSPHAMIDE [Suspect]
     Active Substance: CYCLOPHOSPHAMIDE
     Dosage: 1315 MILLIGRAM, Q3W (1315 MG, EVERY 3 WEEKS)
     Route: 042
     Dates: start: 20230818, end: 20230818
  10. CYCLOPHOSPHAMIDE [Suspect]
     Active Substance: CYCLOPHOSPHAMIDE
     Dosage: 1316 MILLIGRAM, Q3W (1316 MG, EVERY 3 WEEKS)
     Route: 042
     Dates: start: 20230908, end: 20230908
  11. CYCLOPHOSPHAMIDE [Suspect]
     Active Substance: CYCLOPHOSPHAMIDE
     Dosage: 1267.5 MILLIGRAM, Q3W (1267.5 MG, EVERY 3 WEEKS)
     Route: 042
     Dates: start: 20230929
  12. DOXORUBICIN [Suspect]
     Active Substance: DOXORUBICIN
     Indication: Diffuse large B-cell lymphoma
     Dosage: 88.4 MILLIGRAM, Q3W (EVERY 3 WEEKS)
     Route: 042
     Dates: start: 20230727, end: 20230727
  13. DOXORUBICIN [Suspect]
     Active Substance: DOXORUBICIN
     Dosage: 87.8 MILLIGRAM, Q3W (87.8 MG, EVERY 3 WEEKS)
     Route: 042
     Dates: start: 20230818, end: 20230908
  14. DOXORUBICIN [Suspect]
     Active Substance: DOXORUBICIN
     Dosage: 84.4 MILLIGRAM, Q3W (84.4 MG, EVERY 3 WEEKS, ONGOING)
     Route: 042
     Dates: start: 20230929
  15. PANTOPRAZOLE [Concomitant]
     Active Substance: PANTOPRAZOLE
     Indication: Gastrointestinal disorder prophylaxis
     Dosage: 40 MILLIGRAM, BID (40 MG, 2/DAYS)
     Route: 065
     Dates: start: 2023
  16. POLYETHYLENE GLYCOLS [Concomitant]
     Active Substance: POLYETHYLENE GLYCOLS
     Indication: Constipation prophylaxis
     Dosage: UNK, BID (2 BAG, 2/DAYS)
     Route: 065
     Dates: start: 2023

REACTIONS (5)
  - Gastric perforation [Recovered/Resolved]
  - Abdominal tenderness [Recovered/Resolved]
  - Abdominal pain upper [Recovered/Resolved]
  - Haematemesis [Recovered/Resolved]
  - Off label use [Unknown]

NARRATIVE: CASE EVENT DATE: 20230801
